FAERS Safety Report 13750076 (Version 1)
Quarter: 2017Q3

REPORT INFORMATION
  Report Type: Spontaneous
  Country: FR (occurrence: FR)
  Receive Date: 20170713
  Receipt Date: 20170713
  Transmission Date: 20171127
  Serious: Yes (Hospitalization, Other)
  Sender: FDA-Public Use
  Company Number: FR-ELI_LILLY_AND_COMPANY-FR201707000813

PATIENT
  Age: 68 Year
  Sex: Male

DRUGS (3)
  1. CISPLATINE [Concomitant]
     Active Substance: CISPLATIN
  2. ALIMTA [Suspect]
     Active Substance: PEMETREXED DISODIUM
     Indication: LUNG ADENOCARCINOMA
     Dosage: UNK, UNKNOWN
     Route: 042
     Dates: start: 201612, end: 20170406
  3. CARBOPLATINE [Suspect]
     Active Substance: CARBOPLATIN
     Indication: LUNG ADENOCARCINOMA
     Dosage: 1 DF, MONTHLY (1/M)
     Route: 042
     Dates: start: 20170117, end: 20170215

REACTIONS (12)
  - Haematuria [Recovered/Resolved]
  - Neutrophil count decreased [Unknown]
  - Haemoglobin decreased [Unknown]
  - Pancytopenia [Unknown]
  - Agranulocytosis [Unknown]
  - Off label use [Unknown]
  - Renal disorder [Unknown]
  - Rash erythematous [Unknown]
  - Febrile neutropenia [Recovered/Resolved]
  - Prostatitis Escherichia coli [Unknown]
  - Thrombocytopenia [Recovered/Resolved]
  - Ecchymosis [Recovered/Resolved]

NARRATIVE: CASE EVENT DATE: 201612
